FAERS Safety Report 5243058-2 (Version None)
Quarter: 2007Q1

REPORT INFORMATION
  Report Type: 
  Country: None (occurrence: None)
  Receive Date: 20070220
  Receipt Date: 20070220
  Transmission Date: 20070707
  Serious: Yes (Hospitalization)
  Sender: FDA-Public Use
  Company Number: None

PATIENT
  Age: 60 Year
  Sex: Female
  Weight: 60 kg

DRUGS (2)
  1. DEMEROL [Suspect]
     Indication: MIGRAINE
     Dosage: 100MG IM
     Route: 030
  2. PROMETHAZINE [Suspect]
     Dosage: 25MG IM
     Route: 030

REACTIONS (4)
  - AGITATION [None]
  - DRUG INEFFECTIVE [None]
  - FEELING ABNORMAL [None]
  - NAUSEA [None]
